FAERS Safety Report 20823490 (Version 2)
Quarter: 2022Q2

REPORT INFORMATION
  Report Type: Report from Study
  Country: US (occurrence: US)
  Receive Date: 20220513
  Receipt Date: 20220605
  Transmission Date: 20220720
  Serious: Yes (Other)
  Sender: FDA-Public Use
  Company Number: US-ABBVIE-22K-163-4391671-00

PATIENT
  Sex: Male

DRUGS (1)
  1. HUMIRA [Suspect]
     Active Substance: ADALIMUMAB
     Indication: Colitis ulcerative
     Route: 058
     Dates: start: 20220408, end: 20220602

REACTIONS (7)
  - Status epilepticus [Recovering/Resolving]
  - Deafness [Unknown]
  - Frequent bowel movements [Unknown]
  - Hypermetropia [Unknown]
  - Headache [Unknown]
  - Colitis ulcerative [Unknown]
  - Crohn^s disease [Unknown]

NARRATIVE: CASE EVENT DATE: 20220101
